FAERS Safety Report 8950522 (Version 1)
Quarter: 2012Q4

REPORT INFORMATION
  Report Type: 
  Country: US (occurrence: US)
  Receive Date: 20121207
  Receipt Date: 20121207
  Transmission Date: 20130627
  Serious: No
  Sender: FDA-Public Use
  Company Number: US-PFIZER INC-2012307683

PATIENT
  Age: 62 Year
  Sex: Female
  Weight: 60.77 kg

DRUGS (4)
  1. EFFEXOR XR [Suspect]
     Indication: DEPRESSION
     Dosage: 75 mg, UNK
  2. VENLAFAXINE [Suspect]
     Indication: DEPRESSION
     Dosage: UNK
     Dates: start: 201009, end: 201010
  3. URSODIOL [Concomitant]
     Dosage: 300 mg, 3x/day
  4. LOSARTAN [Concomitant]
     Dosage: 25 mg, 1x/day

REACTIONS (1)
  - Drug ineffective [Unknown]
